FAERS Safety Report 19777827 (Version 4)
Quarter: 2021Q4

REPORT INFORMATION
  Report Type: Report from Study
  Country: US (occurrence: US)
  Receive Date: 20210902
  Receipt Date: 20211203
  Transmission Date: 20220304
  Serious: Yes (Hospitalization, Other)
  Sender: FDA-Public Use
  Company Number: US-ABBVIE-21K-163-4062797-00

PATIENT
  Sex: Female

DRUGS (4)
  1. HUMIRA [Suspect]
     Active Substance: ADALIMUMAB
     Indication: Crohn^s disease
     Route: 058
     Dates: start: 2009
  2. PFIZER-BIONTECH COVID-19 VACCINE [Concomitant]
     Active Substance: TOZINAMERAN
     Indication: COVID-19 immunisation
     Route: 030
     Dates: start: 20210809, end: 20210809
  3. PFIZER-BIONTECH COVID-19 VACCINE [Concomitant]
     Active Substance: TOZINAMERAN
     Route: 030
     Dates: start: 20210830, end: 20210830
  4. HYDROCODONE [Concomitant]
     Active Substance: HYDROCODONE
     Indication: Arthralgia

REACTIONS (28)
  - Haemorrhage [Unknown]
  - Fatigue [Unknown]
  - Dysgraphia [Not Recovered/Not Resolved]
  - Choking [Not Recovered/Not Resolved]
  - Vocal cord paralysis [Not Recovered/Not Resolved]
  - Spinal compression fracture [Unknown]
  - Lymphadenopathy [Unknown]
  - Foot deformity [Not Recovered/Not Resolved]
  - Cerebrovascular accident [Recovered/Resolved with Sequelae]
  - Hand fracture [Unknown]
  - Cough [Not Recovered/Not Resolved]
  - Large intestine polyp [Recovered/Resolved]
  - Haemoglobin decreased [Unknown]
  - Fall [Recovered/Resolved]
  - Coronary artery occlusion [Recovered/Resolved]
  - Wrist fracture [Unknown]
  - Rectal haemorrhage [Recovered/Resolved]
  - Foot fracture [Unknown]
  - Ankle fracture [Unknown]
  - Upper limb fracture [Unknown]
  - Arthralgia [Unknown]
  - Unevaluable event [Not Recovered/Not Resolved]
  - Pain in extremity [Unknown]
  - Chest pain [Recovered/Resolved]
  - Myocardial infarction [Recovered/Resolved]
  - Abdominal pain upper [Recovered/Resolved]
  - Pain [Not Recovered/Not Resolved]
  - Peripheral swelling [Unknown]

NARRATIVE: CASE EVENT DATE: 20200101
